FAERS Safety Report 11398914 (Version 2)
Quarter: 2015Q4

REPORT INFORMATION
  Report Type: Spontaneous
  Country: US (occurrence: US)
  Receive Date: 20150806
  Receipt Date: 20151116
  Transmission Date: 20160304
  Serious: Yes (Hospitalization)
  Sender: FDA-Public Use
  Company Number: 1713747-2015-999244

PATIENT
  Age: 69 Year
  Sex: Male

DRUGS (16)
  1. CALCITRIOL. [Concomitant]
     Active Substance: CALCITRIOL
  2. ASPRIN [Concomitant]
     Active Substance: ASPIRIN
  3. SIMVASTATIN. [Concomitant]
     Active Substance: SIMVASTATIN
  4. FUROSEMIDE. [Concomitant]
     Active Substance: FUROSEMIDE
     Route: 048
  5. OMEPRAZOLE. [Concomitant]
     Active Substance: OMEPRAZOLE
     Route: 048
  6. CLOBETASOL PROPIONATE. [Concomitant]
     Active Substance: CLOBETASOL PROPIONATE
     Route: 061
  7. DELFLEX [Suspect]
     Active Substance: CALCIUM CHLORIDE\DEXTROSE MONOHYDRATE\MAGNESIUM CHLORIDE\SODIUM CHLORIDE\SODIUM LACTATE
     Indication: CHRONIC KIDNEY DISEASE
     Route: 033
     Dates: end: 20150710
  8. ESSENTIAL SOLUTION COENZYME Q10 MASK SHEET [Concomitant]
     Active Substance: ALLANTOIN\GLYCERIN
  9. ALLOPURINOL. [Concomitant]
     Active Substance: ALLOPURINOL
     Route: 048
  10. AMLODIPINE [Concomitant]
     Active Substance: AMLODIPINE BESYLATE
     Route: 048
  11. NOVOLOG [Concomitant]
     Active Substance: INSULIN ASPART
  12. RENVELA [Concomitant]
     Active Substance: SEVELAMER CARBONATE
  13. METOPROLOL SUCCINATE. [Concomitant]
     Active Substance: METOPROLOL SUCCINATE
     Route: 048
  14. TAMSULOSIN HYDROCHLORIDE. [Concomitant]
     Active Substance: TAMSULOSIN HYDROCHLORIDE
     Route: 048
  15. CHOLECALCIFEROL [Concomitant]
     Active Substance: CHOLECALCIFEROL
     Route: 048
  16. DOCUSATE SODIUM 50 MG [Concomitant]
     Active Substance: DOCUSATE SODIUM

REACTIONS (2)
  - Abdominal sepsis [Recovered/Resolved with Sequelae]
  - Fungal peritonitis [Recovered/Resolved]

NARRATIVE: CASE EVENT DATE: 20150707
